FAERS Safety Report 25334069 (Version 1)
Quarter: 2025Q2

REPORT INFORMATION
  Report Type: Spontaneous
  Country: US (occurrence: US)
  Receive Date: 20250520
  Receipt Date: 20250520
  Transmission Date: 20250716
  Serious: Yes (Other)
  Sender: RANBAXY
  Company Number: US-SUN PHARMACEUTICAL INDUSTRIES LTD-2025R1-506937

PATIENT
  Age: 6 Decade
  Sex: Male

DRUGS (3)
  1. TRAMADOL [Suspect]
     Active Substance: TRAMADOL
     Indication: Neuropathy peripheral
     Route: 065
  2. TAPENTADOL [Suspect]
     Active Substance: TAPENTADOL
     Indication: Neuropathy peripheral
     Route: 065
  3. FENTANYL [Suspect]
     Active Substance: FENTANYL
     Indication: Neuropathy peripheral
     Route: 065

REACTIONS (1)
  - Treatment failure [Unknown]
